FAERS Safety Report 5634138-8 (Version None)
Quarter: 2008Q1

REPORT INFORMATION
  Report Type: 
  Country: None (occurrence: None)
  Receive Date: 20080221
  Receipt Date: 20080221
  Transmission Date: 20080703
  Serious: Yes (Hospitalization)
  Sender: FDA-Public Use
  Company Number: None

PATIENT
  Age: 69 Year
  Sex: Female
  Weight: 74 kg

DRUGS (2)
  1. AVASTIN [Suspect]
     Indication: MALIGNANT MELANOMA
     Dosage: 750 MG Q 2 WKS IV
     Route: 042
  2. TARCEVA [Suspect]
     Indication: MALIGNANT MELANOMA
     Dosage: 100MG QD X 2 WKS

REACTIONS (4)
  - BLOOD PRESSURE INCREASED [None]
  - LIVER FUNCTION TEST ABNORMAL [None]
  - NAUSEA [None]
  - VOMITING [None]
